FAERS Safety Report 12587249 (Version 1)
Quarter: 2016Q3

REPORT INFORMATION
  Report Type: Spontaneous
  Country: JP (occurrence: JP)
  Receive Date: 20160725
  Receipt Date: 20160725
  Transmission Date: 20161109
  Serious: Yes (Hospitalization)
  Sender: FDA-Public Use
  Company Number: JP-EISAI MEDICAL RESEARCH-EC-2016-015565

PATIENT
  Sex: Female

DRUGS (1)
  1. HALAVEN [Suspect]
     Active Substance: ERIBULIN MESYLATE
     Indication: BREAST CANCER RECURRENT
     Route: 041

REACTIONS (4)
  - Neuropathy peripheral [Recovered/Resolved]
  - Dysgeusia [Recovered/Resolved]
  - Malaise [Recovered/Resolved]
  - Interstitial lung disease [Recovered/Resolved]
